FAERS Safety Report 9966624 (Version 2)
Quarter: 2014Q1

REPORT INFORMATION
  Report Type: Report from Study
  Country: PR (occurrence: PR)
  Receive Date: 20140305
  Receipt Date: 20140307
  Transmission Date: 20141002
  Serious: Yes (Hospitalization, Other)
  Sender: FDA-Public Use
  Company Number: PR-ABBVIE-13P-131-1128207-00

PATIENT
  Age: 30 Year
  Sex: Female
  Weight: 54.48 kg

DRUGS (3)
  1. HUMIRA [Suspect]
     Indication: CROHN^S DISEASE
     Route: 058
     Dates: start: 2012, end: 201305
  2. HUMIRA [Suspect]
     Route: 058
     Dates: end: 201401
  3. PROTONIX [Concomitant]
     Indication: GASTROINTESTINAL DISORDER
     Route: 048

REACTIONS (4)
  - Intestinal operation [Recovered/Resolved]
  - Nasopharyngitis [Recovered/Resolved]
  - Urinary tract infection [Unknown]
  - Enteritis [Unknown]
